FAERS Safety Report 10074724 (Version 1)
Quarter: 2014Q2

REPORT INFORMATION
  Report Type: Spontaneous
  Country: BR (occurrence: BR)
  Receive Date: 20140414
  Receipt Date: 20140414
  Transmission Date: 20141212
  Serious: Yes (Other)
  Sender: FDA-Public Use
  Company Number: BR-PFIZER INC-2014098051

PATIENT
  Age: 76 Year
  Sex: Male

DRUGS (1)
  1. XALATAN [Suspect]
     Indication: CATARACT
     Dosage: LATANOPROST 3.0 UG (1 DROP IN EACH EYE), ONCE A DAY
     Route: 047
     Dates: start: 201308

REACTIONS (3)
  - Cataract [Unknown]
  - Hypertension [Unknown]
  - Off label use [Not Recovered/Not Resolved]
